FAERS Safety Report 8806701 (Version 1)
Quarter: 2012Q4

REPORT INFORMATION
  Report Type: 
  Country: JP (occurrence: JP)
  Receive Date: 20120925
  Receipt Date: 20120925
  Transmission Date: 20130627
  Serious: Yes (Other)
  Sender: FDA-Public Use
  Company Number: PHHY2012JP082090

PATIENT

DRUGS (7)
  1. TEGRETOL [Suspect]
     Route: 048
  2. PHENOBAL [Concomitant]
     Route: 048
  3. FAMOTIDINE [Concomitant]
     Route: 048
  4. CORTRIL [Concomitant]
     Route: 048
  5. THYRADIN [Concomitant]
     Route: 048
  6. SODIUM CHLORIDE [Concomitant]
  7. FLORINEF [Concomitant]
     Route: 048

REACTIONS (4)
  - Convulsion [Unknown]
  - Diarrhoea [Unknown]
  - Vomiting [Unknown]
  - Drug level decreased [Unknown]
